FAERS Safety Report 4399370-2 (Version None)
Quarter: 2004Q3

REPORT INFORMATION
  Report Type: 
  Country: None (occurrence: None)
  Receive Date: 20040712
  Receipt Date: 20040624
  Transmission Date: 20050211
  Serious: Yes (Death, Hospitalization)
  Sender: FDA-Public Use
  Company Number: A02200402036

PATIENT
  Age: 80 Year
  Sex: Male

DRUGS (8)
  1. XATRAL (ALFUZOSIN) TABLET PR 5 MG [Suspect]
     Dosage: 5 MG,OD ORAL
     Route: 048
     Dates: start: 20040101, end: 20040126
  2. LOXAPAC - (LOXAPINE SUCCINATE) - SOLUTION - 25 MG/ML [Suspect]
     Dosage: 3 MG TID, ORAL
     Route: 048
     Dates: start: 20030425, end: 20040126
  3. XANAX [Suspect]
     Dosage: 0.25 MG MG, TID, ORAL
     Route: 048
     Dates: start: 20040325, end: 20040426
  4. SEROPRAM - (CITALOPRAM HYDROBROMIDE) - TABLET - 20 MG [Suspect]
     Dosage: 20 MG OD ORAL
     Route: 048
     Dates: start: 20040325, end: 20040426
  5. VALPROATE SODIUM [Concomitant]
  6. REMINYL [Concomitant]
  7. XALATAN [Concomitant]
  8. DI-ANTALVIC (PARACETAMOL/DEXTROPROPOXYPHENE) [Concomitant]

REACTIONS (8)
  - ABNORMAL BEHAVIOUR [None]
  - AGITATION [None]
  - CEREBRAL HAEMORRHAGE [None]
  - COMA [None]
  - HEADACHE [None]
  - LOSS OF CONSCIOUSNESS [None]
  - MYDRIASIS [None]
  - POST PROCEDURAL COMPLICATION [None]
